FAERS Safety Report 6803489-3 (Version None)
Quarter: 2010Q2

REPORT INFORMATION
  Report Type: 
  Country: None (occurrence: None)
  Receive Date: 20100628
  Receipt Date: 20100625
  Transmission Date: 20101027
  Serious: Yes (Life-Threatening, Hospitalization, Other)
  Sender: FDA-Public Use
  Company Number: DE-JNJFOC-20100604999

PATIENT
  Age: 61 Year
  Sex: Male

DRUGS (3)
  1. TAVANIC [Suspect]
     Indication: INFECTION PROPHYLAXIS
     Route: 048
  2. HEPARIN SODIUM [Suspect]
     Indication: THROMBOSIS PROPHYLAXIS
     Route: 065
  3. NOVALGIN [Suspect]
     Indication: PAIN
     Route: 065

REACTIONS (16)
  - ANAEMIA POSTOPERATIVE [None]
  - ANGIOEDEMA [None]
  - ANTICHOLINERGIC SYNDROME [None]
  - BENIGN PROSTATIC HYPERPLASIA [None]
  - DECREASED APPETITE [None]
  - DRUG HYPERSENSITIVITY [None]
  - DRUG INTOLERANCE [None]
  - DRUG TOXICITY [None]
  - GENERAL PHYSICAL HEALTH DETERIORATION [None]
  - HAEMATOMA [None]
  - HAEMODIALYSIS [None]
  - HAEMOGLOBIN DECREASED [None]
  - MUSCLE ATROPHY [None]
  - RENAL FAILURE ACUTE [None]
  - TUBULOINTERSTITIAL NEPHRITIS [None]
  - URINARY RETENTION [None]
